FAERS Safety Report 5824565-8 (Version None)
Quarter: 2008Q3

REPORT INFORMATION
  Report Type: 
  Country: None (occurrence: None)
  Receive Date: 20080728
  Receipt Date: 20080718
  Transmission Date: 20090109
  Serious: Yes (Hospitalization)
  Sender: FDA-Public Use
  Company Number: JP-MERCK-0806USA07752

PATIENT
  Age: 38 Year
  Sex: Female

DRUGS (1)
  1. PRIMAXIN [Suspect]
     Indication: TONSILLITIS BACTERIAL
     Route: 042
     Dates: start: 20080618, end: 20080619

REACTIONS (4)
  - EPILEPSY [None]
  - MENINGITIS [None]
  - RASH [None]
  - RESTLESSNESS [None]
